FAERS Safety Report 17455722 (Version 1)
Quarter: 2020Q1

REPORT INFORMATION
  Report Type: Spontaneous
  Country: CZ (occurrence: CZ)
  Receive Date: 20200225
  Receipt Date: 20200225
  Transmission Date: 20200409
  Serious: Yes (Hospitalization, Other)
  Sender: FDA-Public Use
  Company Number: NVSC2020CZ040087

PATIENT
  Sex: Male
  Weight: 86 kg

DRUGS (15)
  1. MIFLONIDE [Suspect]
     Active Substance: BUDESONIDE
     Indication: LUNG DISORDER
     Dosage: UNK
     Route: 065
     Dates: start: 201310
  2. BERODUAL [Interacting]
     Active Substance: FENOTEROL HYDROBROMIDE\IPRATROPIUM BROMIDE
     Indication: LUNG DISORDER
     Dosage: UNK
     Route: 065
     Dates: start: 201702
  3. TRITACE [Concomitant]
     Active Substance: RAMIPRIL
     Indication: HYPERTENSION
     Dosage: UNK
     Route: 065
     Dates: start: 201705
  4. APIXABAN [Suspect]
     Active Substance: APIXABAN
     Indication: PRODUCT USED FOR UNKNOWN INDICATION
     Dosage: UNK
     Route: 065
  5. ELIQUIS [Suspect]
     Active Substance: APIXABAN
     Dosage: 10 MG, QD (5 MILLIGRAM, BID)
     Route: 048
     Dates: start: 20171213, end: 20191101
  6. ZALDIAR [Concomitant]
     Active Substance: ACETAMINOPHEN\TRAMADOL HYDROCHLORIDE
     Indication: OSTEOARTHRITIS
     Dosage: UNK
     Route: 065
     Dates: start: 201803
  7. FURON [Concomitant]
     Active Substance: FUROSEMIDE
     Indication: CARDIAC FAILURE CHRONIC
     Dosage: UNK
     Route: 065
     Dates: start: 201705
  8. EUTHYROX [Concomitant]
     Active Substance: LEVOTHYROXINE SODIUM
     Indication: THYROID DISORDER
     Dosage: UNK
     Route: 065
     Dates: start: 201901
  9. RIVODARON [Interacting]
     Active Substance: AMIODARONE HYDROCHLORIDE
     Indication: ATRIAL FIBRILLATION
     Dosage: UNK
     Route: 065
     Dates: start: 201705
  10. GODASAL [Suspect]
     Active Substance: ASPIRIN\GLYCINE
     Indication: MYOCARDIAL ISCHAEMIA
     Dosage: 100 MG ( 100 MILLIGRAM, DAILY )
     Route: 065
     Dates: start: 1991
  11. ELIQUIS [Suspect]
     Active Substance: APIXABAN
     Indication: CEREBROVASCULAR ACCIDENT PROPHYLAXIS
     Dosage: 5 MG, QD (2.5 MILLIGRAM, BID)
     Route: 048
     Dates: start: 20191102
  12. AFONILUM [Interacting]
     Active Substance: THEOPHYLLINE
     Indication: LUNG DISORDER
     Dosage: UNK
     Route: 065
     Dates: start: 2002
  13. NOLPAZA [Concomitant]
     Active Substance: PANTOPRAZOLE SODIUM
     Indication: GASTROOESOPHAGEAL REFLUX DISEASE
     Dosage: UNK
     Route: 065
     Dates: start: 201709
  14. BISOPROLOL [Concomitant]
     Active Substance: BISOPROLOL
     Indication: MYOCARDIAL ISCHAEMIA
     Dosage: UNK
     Route: 065
     Dates: start: 201705
  15. ROSUVASTATIN. [Concomitant]
     Active Substance: ROSUVASTATIN
     Indication: DYSLIPIDAEMIA
     Dosage: UNK
     Route: 065
     Dates: start: 201906

REACTIONS (4)
  - Large intestine polyp [Recovering/Resolving]
  - Diverticulum intestinal haemorrhagic [Recovered/Resolved]
  - Intentional product use issue [Unknown]
  - Large intestinal haemorrhage [Recovering/Resolving]

NARRATIVE: CASE EVENT DATE: 20191113
